FAERS Safety Report 5013603-0 (Version None)
Quarter: 2006Q2

REPORT INFORMATION
  Report Type: 
  Country: None (occurrence: None)
  Receive Date: 20060530
  Receipt Date: 20060524
  Transmission Date: 20061013
  Serious: Yes (Other)
  Sender: FDA-Public Use
  Company Number: US-GLAXOSMITHKLINE-A0606781A

PATIENT
  Age: 44 Year
  Sex: Female

DRUGS (2)
  1. WELLBUTRIN [Suspect]
     Indication: DEPRESSION
     Dosage: 300MG PER DAY
     Route: 048
     Dates: start: 20030101, end: 20060501
  2. ADDERALL 10 [Concomitant]

REACTIONS (5)
  - BLINDNESS [None]
  - DECREASED APPETITE [None]
  - EYE PAIN [None]
  - GLAUCOMA [None]
  - MIGRAINE [None]
